FAERS Safety Report 8033741-8 (Version None)
Quarter: 2012Q1

REPORT INFORMATION
  Report Type: 
  Country: None (occurrence: None)
  Receive Date: 20120110
  Receipt Date: 20111230
  Transmission Date: 20120608
  Serious: Yes (Hospitalization)
  Sender: FDA-Public Use
  Company Number: JP-GLAXOSMITHKLINE-B0774204A

PATIENT
  Sex: Male

DRUGS (7)
  1. LANSOPRAZOLE [Concomitant]
  2. WARFARIN SODIUM [Concomitant]
  3. CLARITHROMYCIN [Concomitant]
  4. EVIPROSTAT [Concomitant]
  5. HOKUNALIN [Concomitant]
  6. MUCODYNE [Concomitant]
  7. VALTREX [Suspect]
     Indication: HERPES ZOSTER
     Dosage: 1500MG PER DAY
     Route: 048
     Dates: start: 20111213

REACTIONS (4)
  - DYSARTHRIA [None]
  - ENCEPHALOPATHY [None]
  - ALTERED STATE OF CONSCIOUSNESS [None]
  - FALL [None]
